FAERS Safety Report 25251686 (Version 4)
Quarter: 2025Q4

REPORT INFORMATION
  Report Type: Report from Study
  Country: CA (occurrence: CA)
  Receive Date: 20250429
  Receipt Date: 20251216
  Transmission Date: 20260118
  Serious: Yes (Other)
  Sender: PFIZER
  Company Number: CA-PFIZER INC-202300204041

PATIENT
  Age: 66 Year
  Sex: Female

DRUGS (22)
  1. RUXIENCE [Suspect]
     Active Substance: RITUXIMAB-PVVR
     Indication: Rheumatoid arthritis
     Dosage: 1000 MG, DAY 1 AND 15
     Route: 042
     Dates: start: 20221025
  2. RUXIENCE [Suspect]
     Active Substance: RITUXIMAB-PVVR
     Dosage: 1000 MG, DAY 1 AND 15
     Route: 042
     Dates: start: 20221109
  3. RUXIENCE [Suspect]
     Active Substance: RITUXIMAB-PVVR
     Dosage: 1000 MG, DAY 1 AND 15
     Route: 042
     Dates: start: 20230524
  4. RUXIENCE [Suspect]
     Active Substance: RITUXIMAB-PVVR
     Dosage: 1000 MG, DAY 15 (1000 MG, DAY 1 AND 15)
     Route: 042
     Dates: start: 20230606
  5. RUXIENCE [Suspect]
     Active Substance: RITUXIMAB-PVVR
     Dosage: 1000 MG, DAY 1 AND 15
     Route: 042
     Dates: start: 20240108, end: 20240123
  6. RUXIENCE [Suspect]
     Active Substance: RITUXIMAB-PVVR
     Dosage: 1000 MG, DAY 1 AND 15
     Route: 042
     Dates: start: 20240123
  7. RUXIENCE [Suspect]
     Active Substance: RITUXIMAB-PVVR
     Dosage: 1000 MG, SUBSEQUENT DAY 1 (DAY 1 AND 15)
     Route: 042
     Dates: start: 20241011
  8. RUXIENCE [Suspect]
     Active Substance: RITUXIMAB-PVVR
     Dosage: 1000 MG, DAY1 AND 15
     Route: 042
     Dates: start: 20241026
  9. RUXIENCE [Suspect]
     Active Substance: RITUXIMAB-PVVR
     Dosage: 1000 MG, AFTER 29 WEEKS (DAY 1 OF SUBSEQUENT TREATMENT) DAY1 AND 15
     Route: 042
     Dates: start: 20250522, end: 20250604
  10. RUXIENCE [Suspect]
     Active Substance: RITUXIMAB-PVVR
     Dosage: 1000 MG, DAY 1 AND 15
     Route: 042
     Dates: start: 20251126
  11. ACETAMINOPHEN [Concomitant]
     Active Substance: ACETAMINOPHEN
     Indication: Premedication
     Dosage: UNK
     Dates: start: 20241011, end: 20241011
  12. ACETAMINOPHEN [Concomitant]
     Active Substance: ACETAMINOPHEN
     Dosage: 650 MG
     Dates: start: 20250522, end: 20250522
  13. BENADRYL [Concomitant]
     Active Substance: DIPHENHYDRAMINE HYDROCHLORIDE
     Indication: Premedication
     Dosage: UNK
     Dates: start: 20230524, end: 20230524
  14. DIPHENHYDRAMINE [Concomitant]
     Active Substance: DIPHENHYDRAMINE
     Indication: Premedication
     Dosage: UNK
     Dates: start: 20241011, end: 20241011
  15. DIPHENHYDRAMINE [Concomitant]
     Active Substance: DIPHENHYDRAMINE
     Dosage: 50 MG
     Dates: start: 20250522, end: 20250522
  16. METHOTREXATE [Concomitant]
     Active Substance: METHOTREXATE
     Dosage: UNK
  17. METHYLPREDNISOLONE [Concomitant]
     Active Substance: METHYLPREDNISOLONE
     Indication: Premedication
     Dosage: UNK
     Dates: start: 20241011, end: 20241011
  18. METHYLPREDNISOLONE [Concomitant]
     Active Substance: METHYLPREDNISOLONE
     Dosage: 100 MG
     Dates: start: 20250522, end: 20250522
  19. ORENCIA [Concomitant]
     Active Substance: ABATACEPT
     Dosage: UNK
  20. PREDNISONE [Concomitant]
     Active Substance: PREDNISONE
     Dosage: UNK
  21. SOLU-MEDROL [Concomitant]
     Active Substance: METHYLPREDNISOLONE SODIUM SUCCINATE
     Indication: Premedication
     Dosage: UNK
     Dates: start: 20230524, end: 20230524
  22. TYLENOL [Concomitant]
     Active Substance: ACETAMINOPHEN
     Indication: Premedication
     Dosage: UNK
     Dates: start: 20230524, end: 20230524

REACTIONS (10)
  - Knee arthroplasty [Recovering/Resolving]
  - Hypertension [Not Recovered/Not Resolved]
  - Blood pressure increased [Unknown]
  - Heart rate irregular [Not Recovered/Not Resolved]
  - Headache [Recovered/Resolved]
  - Heart rate increased [Not Recovered/Not Resolved]
  - Migraine [Unknown]
  - Off label use [Unknown]
  - Off label use [Unknown]
  - Intentional product use issue [Unknown]

NARRATIVE: CASE EVENT DATE: 20230524
